FAERS Safety Report 9281647 (Version 1)
Quarter: 2013Q2

REPORT INFORMATION
  Report Type: Spontaneous
  Country: FR (occurrence: FR)
  Receive Date: 20130509
  Receipt Date: 20130509
  Transmission Date: 20140414
  Serious: Yes (Other)
  Sender: FDA-Public Use
  Company Number: FR-MYLANLABS-2013S1009370

PATIENT
  Age: 55 Year
  Sex: Female

DRUGS (2)
  1. CAPECITABINE [Suspect]
     Indication: BREAST CANCER
     Dosage: 2500 MG/M2/DAY IN TWO DIVIDED DOSES FOR 14D FOLLOWED BY 1WK OFF
     Route: 048
     Dates: end: 201107
  2. LETROZOLE [Suspect]
     Route: 065

REACTIONS (5)
  - Asthenia [Unknown]
  - Nausea [Unknown]
  - Onycholysis [Unknown]
  - Macrocytosis [Unknown]
  - Hepatotoxicity [Unknown]
